FAERS Safety Report 20281892 (Version 1)
Quarter: 2022Q1

REPORT INFORMATION
  Report Type: Spontaneous
  Country: NL (occurrence: NL)
  Receive Date: 20220103
  Receipt Date: 20220103
  Transmission Date: 20220423
  Serious: Yes (Other)
  Sender: FDA-Public Use
  Company Number: None

PATIENT
  Sex: Female
  Weight: 75 kg

DRUGS (5)
  1. ATORVASTATIN [Suspect]
     Active Substance: ATORVASTATIN
     Indication: Hypercholesterolaemia
     Dosage: 1 X 1 PER DAY IN THE EVENING
     Dates: start: 2021, end: 20210228
  2. ALBUTEROL [Concomitant]
     Active Substance: ALBUTEROL
     Dosage: SOMS VENTOLIN
  3. DESLORATADINE [Concomitant]
     Active Substance: DESLORATADINE
     Dosage: 1 X 1 PER DAG VAN DE EERSTE TWEE.
  4. NITROGLYCERIN [Concomitant]
     Active Substance: NITROGLYCERIN
     Dosage: SPORADISCH
  5. BUPROPION [Concomitant]
     Active Substance: BUPROPION
     Dosage: 1 X 1 PER DAG VAN DE EERSTE TWEE.

REACTIONS (2)
  - Muscle rupture [Recovering/Resolving]
  - Muscle spasms [Recovering/Resolving]
